FAERS Safety Report 22976567 (Version 3)
Quarter: 2023Q4

REPORT INFORMATION
  Report Type: Report from Study
  Country: SE (occurrence: SE)
  Receive Date: 20230925
  Receipt Date: 20231012
  Transmission Date: 20240110
  Serious: Yes (Disabling)
  Sender: FDA-Public Use
  Company Number: SE-BAYER-2023A133189

PATIENT
  Age: 71 Year
  Sex: Female

DRUGS (9)
  1. EYLEA [Suspect]
     Active Substance: AFLIBERCEPT
     Indication: Neovascular age-related macular degeneration
     Dosage: UNK UNK, ONCE, SOLUTION FOR INJECTION, 40 MG/ML
     Route: 031
     Dates: start: 20200122, end: 20200122
  2. EYLEA [Suspect]
     Active Substance: AFLIBERCEPT
     Dosage: UNK, OD, SOLUTION FOR INJECTION, 40 MG/ML
     Route: 031
     Dates: start: 20200318, end: 20200318
  3. EYLEA [Suspect]
     Active Substance: AFLIBERCEPT
     Dosage: ,ODUNK, SOLUTION FOR INJECTION, 40 MG/ML
     Route: 031
     Dates: start: 20200429, end: 20200429
  4. EYLEA [Suspect]
     Active Substance: AFLIBERCEPT
     Dosage: ,ODUNK, SOLUTION FOR INJECTION, 40 MG/ML
     Route: 031
     Dates: start: 20200527, end: 20200527
  5. EYLEA [Suspect]
     Active Substance: AFLIBERCEPT
     Dosage: UNK, OD, SOLUTION FOR INJECTION, 40 MG/ML
     Route: 031
     Dates: start: 20200625, end: 20200625
  6. ALPRAZOLAM [Concomitant]
     Active Substance: ALPRAZOLAM
     Indication: Anxiety
     Dosage: 2 DF
     Dates: start: 20200506
  7. AFLIBERCEPT [Concomitant]
     Active Substance: AFLIBERCEPT
     Indication: Prophylaxis
     Dosage: UNK
     Dates: start: 20200305, end: 20200305
  8. AFLIBERCEPT [Concomitant]
     Active Substance: AFLIBERCEPT
     Indication: Neovascular age-related macular degeneration
     Dosage: UNK, ONCE
     Dates: start: 20200429, end: 20200429
  9. AFLIBERCEPT [Concomitant]
     Active Substance: AFLIBERCEPT
     Dosage: UNK
     Dates: start: 20200625, end: 20200625

REACTIONS (1)
  - Visual impairment [Not Recovered/Not Resolved]

NARRATIVE: CASE EVENT DATE: 20200625
